FAERS Safety Report 20296824 (Version 2)
Quarter: 2023Q4

REPORT INFORMATION
  Report Type: Spontaneous
  Country: US (occurrence: None)
  Receive Date: 20220105
  Receipt Date: 20231219
  Transmission Date: 20240109
  Serious: No
  Sender: FDA-Public Use
  Company Number: US-ROCHE-2920268

PATIENT
  Age: 2 Year
  Sex: Male

DRUGS (1)
  1. HEMLIBRA [Suspect]
     Active Substance: EMICIZUMAB-KXWH
     Indication: Factor VIII deficiency
     Dosage: 30 MG/ML, ONGOING YES
     Route: 058
     Dates: start: 20210505

REACTIONS (2)
  - Fall [Unknown]
  - Haematoma [Unknown]

NARRATIVE: CASE EVENT DATE: 20210801
